FAERS Safety Report 7247750-X (Version None)
Quarter: 2011Q1

REPORT INFORMATION
  Report Type: 
  Country: None (occurrence: None)
  Receive Date: 20110127
  Receipt Date: 20110124
  Transmission Date: 20110831
  Serious: Yes (Other)
  Sender: FDA-Public Use
  Company Number: US-ROXANE LABORATORIES, INC.-2011-RO-00094RO

PATIENT
  Age: 18 Year
  Sex: Male

DRUGS (4)
  1. LEUCOVORIN CALCIUM [Suspect]
     Indication: DRUG TOXICITY PROPHYLAXIS
  2. DOXORUBICIN [Suspect]
     Indication: BONE SARCOMA
  3. CISPLATIN [Suspect]
     Indication: BONE SARCOMA
  4. METHOTREXATE [Suspect]
     Indication: BONE SARCOMA
     Route: 042

REACTIONS (3)
  - WOUND INFECTION [None]
  - DRUG CLEARANCE DECREASED [None]
  - NEPHROPATHY TOXIC [None]
